FAERS Safety Report 5618719-3 (Version None)
Quarter: 2008Q1

REPORT INFORMATION
  Report Type: 
  Country: None (occurrence: None)
  Receive Date: 20080207
  Receipt Date: 20080129
  Transmission Date: 20080703
  Serious: Yes (Hospitalization)
  Sender: FDA-Public Use
  Company Number: GB-ASTRAZENECA-2008GB00172

PATIENT
  Age: 73 Year
  Sex: Male
  Weight: 76 kg

DRUGS (7)
  1. CASODEX [Suspect]
     Indication: PROSTATE CANCER
     Route: 048
     Dates: start: 20080106, end: 20080113
  2. ASPIRIN [Concomitant]
     Route: 048
  3. ATROVENT [Concomitant]
     Route: 055
  4. CO-DYDRAMOL [Concomitant]
     Route: 048
  5. ROSUVASTATIN [Concomitant]
     Route: 048
  6. ALBUTEROL [Concomitant]
     Route: 055
  7. SERETIDE [Concomitant]
     Route: 055

REACTIONS (4)
  - DIZZINESS [None]
  - RENAL FAILURE ACUTE [None]
  - SYNCOPE [None]
  - VASCULITIC RASH [None]
